FAERS Safety Report 22188796 (Version 2)
Quarter: 2023Q2

REPORT INFORMATION
  Report Type: Report from Study
  Country: US (occurrence: None)
  Receive Date: 20230409
  Receipt Date: 20230501
  Transmission Date: 20230721
  Serious: Yes (Hospitalization)
  Sender: FDA-Public Use
  Company Number: US-ROCHE-3324923

PATIENT
  Age: 62 Year
  Sex: Female
  Weight: 55.2 kg

DRUGS (2)
  1. ATEZOLIZUMAB [Suspect]
     Active Substance: ATEZOLIZUMAB
     Indication: Small cell lung cancer
     Dosage: DATE OF LAST DOSE: 23/MAR/2023
     Route: 042
     Dates: start: 20230323
  2. TEMOZOLOMIDE [Suspect]
     Active Substance: TEMOZOLOMIDE
     Indication: Small cell lung cancer
     Dosage: DAILY, DAY 1 TO DAY 14 ?LAST DOSE DATE: 02/APR/2023
     Route: 048
     Dates: start: 20230323

REACTIONS (1)
  - Pericardial effusion [Recovered/Resolved with Sequelae]

NARRATIVE: CASE EVENT DATE: 20230402
